FAERS Safety Report 7688481-1 (Version None)
Quarter: 2011Q3

REPORT INFORMATION
  Report Type: 
  Country: None (occurrence: None)
  Receive Date: 20110817
  Receipt Date: 20110811
  Transmission Date: 20111222
  Serious: Yes (Death, Other)
  Sender: FDA-Public Use
  Company Number: DK-ROCHE-796649

PATIENT
  Age: 59 Year

DRUGS (5)
  1. AMLODIPINE [Suspect]
     Route: 065
  2. CODEINE SULFATE [Suspect]
     Route: 065
  3. IBUPROFEN [Suspect]
     Route: 065
  4. CLONAZEPAM [Suspect]
     Route: 065
  5. MORPHINE [Suspect]
     Route: 065

REACTIONS (2)
  - TOXICITY TO VARIOUS AGENTS [None]
  - DEATH [None]
